FAERS Safety Report 10658436 (Version 1)
Quarter: 2014Q4

REPORT INFORMATION
  Report Type: Spontaneous
  Country: US (occurrence: US)
  Receive Date: 20141217
  Receipt Date: 20141217
  Transmission Date: 20150529
  Serious: No
  Sender: FDA-Public Use
  Company Number: US-GLAXOSMITHKLINE-A1067558A

PATIENT

DRUGS (1)
  1. VOTRIENT [Suspect]
     Active Substance: PAZOPANIB HYDROCHLORIDE
     Indication: CARCINOID SYNDROME
     Dosage: 800 MG DAILY THEN REDUCED TO 400 MG DAILY THEN DISCONTINUED
     Route: 065
     Dates: start: 20131014

REACTIONS (3)
  - Asthenia [Unknown]
  - Fatigue [Unknown]
  - Parkinsonism [Unknown]
